FAERS Safety Report 6697726-6 (Version None)
Quarter: 2010Q2

REPORT INFORMATION
  Report Type: 
  Country: None (occurrence: None)
  Receive Date: 20100426
  Receipt Date: 20100419
  Transmission Date: 20101027
  Serious: Yes (Other)
  Sender: FDA-Public Use
  Company Number: CA-AMGEN-QUU401907

PATIENT
  Sex: Female

DRUGS (3)
  1. ENBREL [Suspect]
     Indication: RHEUMATOID ARTHRITIS
     Dates: start: 20070401, end: 20080901
  2. METHOTREXATE [Suspect]
     Dates: start: 20060201, end: 20080901
  3. PREDNISONE [Concomitant]
     Dates: start: 20050701

REACTIONS (6)
  - ANTINUCLEAR ANTIBODY POSITIVE [None]
  - DRUG TOXICITY [None]
  - GAIT DISTURBANCE [None]
  - MYALGIA [None]
  - MYOSITIS [None]
  - RAYNAUD'S PHENOMENON [None]
